FAERS Safety Report 6377029-X (Version None)
Quarter: 2009Q3

REPORT INFORMATION
  Report Type: 
  Country: None (occurrence: None)
  Receive Date: 20090925
  Receipt Date: 20090914
  Transmission Date: 20100115
  Serious: Yes (Hospitalization, Disabling)
  Sender: FDA-Public Use
  Company Number: JP-JNJFOC-20080805404

PATIENT
  Sex: Male

DRUGS (29)
  1. PREZISTA [Suspect]
     Indication: HIV INFECTION
     Route: 048
  2. EPIVIR [Concomitant]
     Route: 048
  3. EPIVIR [Concomitant]
     Indication: HIV INFECTION
     Route: 048
  4. ZERIT [Concomitant]
     Indication: HIV INFECTION
     Route: 048
  5. NORVIR [Concomitant]
     Indication: HIV INFECTION
     Route: 048
  6. STOCRIN [Concomitant]
     Indication: HIV INFECTION
     Route: 048
  7. KALETRA [Concomitant]
     Route: 048
  8. KALETRA [Concomitant]
     Indication: HIV INFECTION
     Route: 048
  9. VIREAD [Concomitant]
     Indication: HIV INFECTION
     Route: 048
  10. TRUVADA [Concomitant]
     Indication: HIV INFECTION
     Route: 048
  11. LEXOTAN [Concomitant]
     Route: 048
  12. LEXOTAN [Concomitant]
     Indication: DEPRESSION
     Route: 048
  13. PAXIL [Concomitant]
     Route: 048
  14. PAXIL [Concomitant]
     Indication: DEPRESSION
     Route: 048
  15. TETRAMIDE [Concomitant]
     Indication: DEPRESSION
     Route: 048
  16. ISENTRESS [Concomitant]
     Indication: HIV INFECTION
  17. ENFUVIRTIDE [Concomitant]
     Indication: HIV INFECTION
  18. RISPERDAL [Concomitant]
  19. RISPERDAL [Concomitant]
  20. RISPERDAL [Concomitant]
     Indication: DEPRESSION
  21. HIRNAMIN (LEVOPROMAZINE MALEATE) [Concomitant]
  22. HIRNAMIN (LEVOPROMAZINE MALEATE) [Concomitant]
  23. HIRNAMIN (LEVOPROMAZINE MALEATE) [Concomitant]
  24. HIRNAMIN (LEVOPROMAZINE MALEATE) [Concomitant]
     Indication: DEPRESSION
  25. DEPAKENE [Concomitant]
  26. DEPAKENE [Concomitant]
     Indication: DEPRESSION
  27. LENDORMIN [Concomitant]
     Indication: DEPRESSION
  28. SENNOSIDE [Concomitant]
     Indication: CONSTIPATION PROPHYLAXIS
  29. BENAMBAX [Concomitant]
     Indication: PROPHYLAXIS

REACTIONS (8)
  - AIDS ENCEPHALOPATHY [None]
  - ANAEMIA [None]
  - BLOOD ALKALINE PHOSPHATASE INCREASED [None]
  - BLOOD TRIGLYCERIDES INCREASED [None]
  - DEPRESSION [None]
  - GAMMA-GLUTAMYLTRANSFERASE INCREASED [None]
  - HEPATIC FUNCTION ABNORMAL [None]
  - SUBDURAL HAEMATOMA [None]
